FAERS Safety Report 9661351 (Version 1)
Quarter: 2013Q4

REPORT INFORMATION
  Report Type: Spontaneous
  Country: US (occurrence: None)
  Receive Date: 20131030
  Receipt Date: 20131030
  Transmission Date: 20140711
  Serious: Yes (Hospitalization)
  Sender: FDA-Public Use
  Company Number: AUR-APL-2013-09001

PATIENT
  Age: 47 Year
  Sex: Male

DRUGS (13)
  1. ONDANSETRON [Suspect]
     Indication: PRODUCT USED FOR UNKNOWN INDICATION
  2. DULOXETINE [Suspect]
     Indication: DEPRESSION
  3. FENTANYL [Suspect]
     Indication: GENERAL ANAESTHESIA
     Route: 042
  4. TRAZADONE [Suspect]
     Indication: PAIN
     Dosage: 100 MG EVERY EVENING
  5. MIDAZOLAM (MIDAZOLAM) [Concomitant]
  6. PROPOFOL (PROPOFOL) [Concomitant]
  7. SUCCINYLCHOLINE (SUXAMETHONIUM CHLORIDE) [Concomitant]
  8. KETAMINE (KETAMINE) [Concomitant]
  9. GLYCOPYRROLATE (GLYCOPYRRONIUM) [Concomitant]
  10. NEOSTIGMINE (NEOSTIGMINE) [Concomitant]
  11. DESFLURANE (DESFLURANE) [Concomitant]
  12. VECURONIUM (VECURONIUM) [Concomitant]
  13. GABAPENTIN (GABAPENTIN) [Concomitant]

REACTIONS (13)
  - Blood pressure systolic increased [None]
  - Heart rate increased [None]
  - Psychomotor hyperactivity [None]
  - Serotonin syndrome [None]
  - Acidosis [None]
  - Pain [None]
  - Clonus [None]
  - Agitation [None]
  - Confusional state [None]
  - Tremor [None]
  - Trismus [None]
  - Muscle rigidity [None]
  - Post procedural complication [None]
